FAERS Safety Report 17147179 (Version 1)
Quarter: 2019Q4

REPORT INFORMATION
  Report Type: Spontaneous
  Country: US (occurrence: US)
  Receive Date: 20191212
  Receipt Date: 20191212
  Transmission Date: 20200122
  Serious: No
  Sender: FDA-Public Use
  Company Number: US-TEVA-2019-US-1151816

PATIENT
  Sex: Female

DRUGS (1)
  1. CALCITRIOL 0.25 MCG [Suspect]
     Active Substance: CALCITRIOL
     Route: 065
     Dates: start: 20191114

REACTIONS (3)
  - Therapy change [Unknown]
  - Arthralgia [Unknown]
  - Neuralgia [Unknown]
